FAERS Safety Report 7006498-7 (Version None)
Quarter: 2010Q3

REPORT INFORMATION
  Report Type: 
  Country: None (occurrence: None)
  Receive Date: 20100921
  Receipt Date: 20100921
  Transmission Date: 20110219
  Serious: No
  Sender: FDA-Public Use
  Company Number: None

PATIENT
  Age: 70 Year
  Sex: Female

DRUGS (1)
  1. SYMBICORT [Suspect]
     Indication: ASTHMA
     Dosage: INHALE 2 PUFFS TWICE A DAY
     Route: 055

REACTIONS (3)
  - ASTHMA [None]
  - DEVICE INEFFECTIVE [None]
  - DEVICE MALFUNCTION [None]
